FAERS Safety Report 18919811 (Version 1)
Quarter: 2021Q1

REPORT INFORMATION
  Report Type: Spontaneous
  Country: CA (occurrence: CA)
  Receive Date: 20210221
  Receipt Date: 20210221
  Transmission Date: 20210420
  Serious: Yes (Disabling, Other)
  Sender: FDA-Public Use
  Company Number: CA-AUROBINDO-AUR-APL-2021-006972

PATIENT
  Age: 59 Year
  Sex: Female

DRUGS (3)
  1. AURO?PAROXETINE TABLET [Suspect]
     Active Substance: PAROXETINE HYDROCHLORIDE
     Indication: GENERALISED ANXIETY DISORDER
  2. AURO?PAROXETINE TABLET [Suspect]
     Active Substance: PAROXETINE HYDROCHLORIDE
     Indication: PANIC ATTACK
     Dosage: 20 MILLIGRAM, ONCE A DAY
     Route: 048
  3. AURO?PAROXETINE TABLET [Suspect]
     Active Substance: PAROXETINE HYDROCHLORIDE
     Indication: MAJOR DEPRESSION

REACTIONS (1)
  - Negative thoughts [Not Recovered/Not Resolved]
